FAERS Safety Report 20211861 (Version 1)
Quarter: 2021Q4

REPORT INFORMATION
  Report Type: Other
  Country: US (occurrence: US)
  Receive Date: 20211221
  Receipt Date: 20211221
  Transmission Date: 20220303
  Serious: No
  Sender: FDA-Public Use
  Company Number: US-ACORDA-ACO_169293_2021

PATIENT
  Sex: Female

DRUGS (6)
  1. INBRIJA [Suspect]
     Active Substance: LEVODOPA
     Indication: On and off phenomenon
     Dosage: 84 MILLIGRAM, AS NEEDED, NOT TO EXCEED 5 DOSES A DAY
     Dates: start: 20210526
  2. INBRIJA [Suspect]
     Active Substance: LEVODOPA
     Indication: Parkinson^s disease
  3. CARBIDOPA\LEVODOPA [Concomitant]
     Active Substance: CARBIDOPA\LEVODOPA
     Indication: Product used for unknown indication
     Dosage: 25/100MG: 0.5PILLS Q3HRS 5 TIMES A DAY
     Route: 065
  4. CARBIDOPA\LEVODOPA [Concomitant]
     Active Substance: CARBIDOPA\LEVODOPA
     Dosage: 25/100: 0.5 PILLS 5X/DAY
     Route: 065
  5. RYTARY [Concomitant]
     Active Substance: CARBIDOPA\LEVODOPA
     Indication: Product used for unknown indication
     Dosage: 23.75/95MG: 2 CAPS IN AM, 1 CAPSULE 4X/DAY
     Route: 065
  6. RYTARY [Concomitant]
     Active Substance: CARBIDOPA\LEVODOPA
     Dosage: 23.75/95MG: 1 CAPSULE 5X/DAY
     Route: 065

REACTIONS (7)
  - Therapeutic product effect delayed [Unknown]
  - Device use issue [Unknown]
  - Product cleaning inadequate [Unknown]
  - Throat irritation [Not Recovered/Not Resolved]
  - Inappropriate schedule of product administration [Unknown]
  - Nasal discharge discolouration [Not Recovered/Not Resolved]
  - Cough [Not Recovered/Not Resolved]
